FAERS Safety Report 12396171 (Version 2)
Quarter: 2016Q3

REPORT INFORMATION
  Report Type: Spontaneous
  Country: US (occurrence: US)
  Receive Date: 20160524
  Receipt Date: 20160802
  Transmission Date: 20161109
  Serious: Yes (Hospitalization, Other)
  Sender: FDA-Public Use
  Company Number: US-BEH-2016062784

PATIENT
  Sex: Female

DRUGS (1)
  1. UNKNOWN IVIG [Suspect]
     Active Substance: HUMAN IMMUNOGLOBULIN G
     Indication: PRODUCT USED FOR UNKNOWN INDICATION

REACTIONS (6)
  - Anaphylactic reaction [Unknown]
  - Respiratory tract infection [Unknown]
  - Arthropathy [Unknown]
  - Cerebral haemorrhage [Unknown]
  - Infection [Unknown]
  - C-reactive protein increased [Unknown]
